FAERS Safety Report 7936746-8 (Version None)
Quarter: 2011Q4

REPORT INFORMATION
  Report Type: 
  Country: None (occurrence: None)
  Receive Date: 20111123
  Receipt Date: 20111114
  Transmission Date: 20120403
  Serious: Yes (Life-Threatening)
  Sender: FDA-Public Use
  Company Number: JP-ROCHE-1004700

PATIENT
  Sex: Male
  Weight: 50 kg

DRUGS (6)
  1. AVASTIN [Suspect]
     Indication: RECTAL CANCER
     Route: 041
     Dates: start: 20110924, end: 20110924
  2. LORFENAMIN [Concomitant]
     Indication: CANCER PAIN
     Route: 048
     Dates: start: 20110920, end: 20111006
  3. DECADRON [Concomitant]
     Indication: PROPHYLAXIS
     Route: 048
     Dates: start: 20110925, end: 20110927
  4. XELODA [Suspect]
     Indication: RECTAL CANCER
     Route: 048
     Dates: start: 20110924, end: 20111006
  5. OXALIPLATIN [Concomitant]
     Indication: RECTAL CANCER
     Dosage: DOSAGE IS UNCERTAIN.
     Route: 041
  6. SELBEX [Concomitant]
     Indication: CANCER PAIN
     Route: 048
     Dates: start: 20110920, end: 20111006

REACTIONS (2)
  - RECTAL PERFORATION [None]
  - ABSCESS [None]
